FAERS Safety Report 10753657 (Version 6)
Quarter: 2015Q4

REPORT INFORMATION
  Report Type: Report from Study
  Country: IL (occurrence: IL)
  Receive Date: 20150201
  Receipt Date: 20151231
  Transmission Date: 20160304
  Serious: No
  Sender: FDA-Public Use
  Company Number: PHHY2014IL138935

PATIENT
  Sex: Female
  Weight: 77.9 kg

DRUGS (5)
  1. LANSOPRAZOLE. [Concomitant]
     Active Substance: LANSOPRAZOLE
     Indication: PRODUCT USED FOR UNKNOWN INDICATION
     Dosage: 50 MG, QD
     Route: 065
  2. CETIRIZINE [Concomitant]
     Active Substance: CETIRIZINE HYDROCHLORIDE
     Indication: PRODUCT USED FOR UNKNOWN INDICATION
     Dosage: 10 MG, QD
     Route: 065
  3. TASIGNA [Suspect]
     Active Substance: NILOTINIB
     Indication: CHRONIC MYELOID LEUKAEMIA
     Dosage: 400 MG, BID
     Route: 048
     Dates: start: 20111101
  4. CARDILOC [Concomitant]
     Active Substance: BISOPROLOL FUMARATE
     Indication: PRODUCT USED FOR UNKNOWN INDICATION
     Dosage: 2.5 MG, QD
     Route: 065
  5. CHOLECALCIFEROL [Concomitant]
     Active Substance: CHOLECALCIFEROL
     Indication: PRODUCT USED FOR UNKNOWN INDICATION
     Dosage: 20 DRP, DAILY
     Route: 065

REACTIONS (13)
  - Blood uric acid increased [Recovering/Resolving]
  - Haemoglobin decreased [Recovering/Resolving]
  - Fluid retention [Unknown]
  - Swelling [Not Recovered/Not Resolved]
  - Blood potassium increased [Recovering/Resolving]
  - Gamma-glutamyltransferase increased [Recovering/Resolving]
  - Weight increased [Unknown]
  - Peripheral swelling [Unknown]
  - Blood cholesterol increased [Recovering/Resolving]
  - Blood creatinine increased [Not Recovered/Not Resolved]
  - Blood potassium increased [Recovered/Resolved]
  - Blood urea increased [Recovering/Resolving]
  - Swelling face [Unknown]
